FAERS Safety Report 14684074 (Version 1)
Quarter: 2018Q1

REPORT INFORMATION
  Report Type: Spontaneous
  Country: US (occurrence: US)
  Receive Date: 20180327
  Receipt Date: 20180327
  Transmission Date: 20180509
  Serious: Yes (Hospitalization, Other)
  Sender: FDA-Public Use
  Company Number: US-GLAXOSMITHKLINE-US2018049787

PATIENT
  Sex: Female

DRUGS (8)
  1. ASPIRIN. [Concomitant]
     Active Substance: ASPIRIN
  2. VENTOLIN HFA [Suspect]
     Active Substance: ALBUTEROL SULFATE
     Indication: CHRONIC OBSTRUCTIVE PULMONARY DISEASE
     Dosage: 2 PUFF(S), PRN
     Route: 055
  3. CARVEDILOL. [Concomitant]
     Active Substance: CARVEDILOL
  4. LIPITOR [Concomitant]
     Active Substance: ATORVASTATIN CALCIUM
  5. FUROSEMIDE. [Concomitant]
     Active Substance: FUROSEMIDE
  6. LISINOPRIL. [Concomitant]
     Active Substance: LISINOPRIL
  7. ALBUTEROL. [Concomitant]
     Active Substance: ALBUTEROL
  8. CLARITINE [Concomitant]
     Active Substance: LORATADINE

REACTIONS (7)
  - Cardiac disorder [Recovering/Resolving]
  - Ejection fraction decreased [Not Recovered/Not Resolved]
  - Coronary arterial stent insertion [Recovered/Resolved]
  - Wheezing [Unknown]
  - Wrong technique in product usage process [Unknown]
  - Myocardial infarction [Recovered/Resolved]
  - Drug ineffective [Unknown]
